FAERS Safety Report 10089741 (Version 1)
Quarter: 2014Q2

REPORT INFORMATION
  Report Type: Spontaneous
  Country: US (occurrence: US)
  Receive Date: 20140421
  Receipt Date: 20140421
  Transmission Date: 20141212
  Serious: Yes (Other)
  Sender: FDA-Public Use
  Company Number: US-PFIZER INC-2014109817

PATIENT
  Age: 78 Year
  Sex: Male
  Weight: 75.28 kg

DRUGS (7)
  1. CELEBREX [Suspect]
     Indication: PAIN
     Dosage: 200 MG, 2X/DAY
     Route: 048
     Dates: start: 2005
  2. CELEBREX [Suspect]
     Dosage: 200 MG, 2X/DAY
     Route: 048
  3. PANTOPRAZOLE [Concomitant]
     Dosage: 40MG
  4. SIMVASTATIN [Concomitant]
     Dosage: 20 MG
  5. OXYBUTYNIN [Concomitant]
     Dosage: 10 MG
  6. LISINOPRIL [Concomitant]
     Dosage: 20 MG
  7. HYDROCODONE [Concomitant]
     Dosage: 500 MG, AS NEEDED

REACTIONS (8)
  - Dislocation of vertebra [Unknown]
  - Intervertebral disc protrusion [Unknown]
  - Expired product administered [Unknown]
  - Loss of control of legs [Unknown]
  - Mobility decreased [Unknown]
  - Limb discomfort [Unknown]
  - Back disorder [Unknown]
  - Fall [Unknown]
